FAERS Safety Report 20567594 (Version 1)
Quarter: 2022Q1

REPORT INFORMATION
  Report Type: Spontaneous
  Country: DE (occurrence: DE)
  Receive Date: 20220308
  Receipt Date: 20220308
  Transmission Date: 20220423
  Serious: Yes (Other)
  Sender: FDA-Public Use
  Company Number: DE-002147023-PHNU2002DE02351

PATIENT
  Age: 34 Year
  Sex: Female
  Weight: 89.6 kg

DRUGS (3)
  1. CLOZAPINE [Suspect]
     Active Substance: CLOZAPINE
     Indication: Schizophrenia
     Dosage: 100 TO 300MG/DAY
     Route: 048
     Dates: start: 198508, end: 20020628
  2. Tavor [Concomitant]
     Indication: Product used for unknown indication
     Dosage: 1 MILLIGRAM, QD
     Route: 048
     Dates: start: 199911, end: 199912
  3. SEROQUEL [Concomitant]
     Active Substance: QUETIAPINE FUMARATE
     Indication: Product used for unknown indication
     Dosage: UNK
     Route: 048
     Dates: start: 199912, end: 199912

REACTIONS (3)
  - Diabetes mellitus inadequate control [Recovered/Resolved with Sequelae]
  - Glycosylated haemoglobin increased [Unknown]
  - Diabetes mellitus [Recovered/Resolved with Sequelae]

NARRATIVE: CASE EVENT DATE: 19980101
